FAERS Safety Report 7561734-3 (Version None)
Quarter: 2011Q2

REPORT INFORMATION
  Report Type: 
  Country: None (occurrence: None)
  Receive Date: 20110621
  Receipt Date: 20110107
  Transmission Date: 20111010
  Serious: No
  Sender: FDA-Public Use
  Company Number: US-ASTRAZENECA-2011SE01678

PATIENT
  Age: 66 Year
  Sex: Female

DRUGS (3)
  1. RHINOCORT [Suspect]
     Route: 045
  2. CRESTOR [Suspect]
     Route: 048
  3. NEXIUM [Suspect]
     Route: 048

REACTIONS (2)
  - DRUG DOSE OMISSION [None]
  - BLOOD PRESSURE INCREASED [None]
